FAERS Safety Report 7747413-8 (Version None)
Quarter: 2011Q3

REPORT INFORMATION
  Report Type: 
  Country: None (occurrence: None)
  Receive Date: 20110913
  Receipt Date: 20110908
  Transmission Date: 20111222
  Serious: Yes (Hospitalization)
  Sender: FDA-Public Use
  Company Number: JP-GLAXOSMITHKLINE-B0737802A

PATIENT
  Age: 40 Year
  Sex: Female

DRUGS (1)
  1. LAMICTAL [Suspect]
     Indication: TEMPORAL LOBE EPILEPSY
     Route: 048

REACTIONS (2)
  - AGGRESSION [None]
  - PERSECUTORY DELUSION [None]
